FAERS Safety Report 9328031 (Version 1)
Quarter: 2013Q2

REPORT INFORMATION
  Report Type: Spontaneous
  Country: US (occurrence: US)
  Receive Date: 20130604
  Receipt Date: 20130604
  Transmission Date: 20140414
  Serious: No
  Sender: FDA-Public Use
  Company Number: US-SANOFI-AVENTIS-2012SA030791

PATIENT
  Age: 52 Year
  Sex: Female
  Weight: 87 kg

DRUGS (10)
  1. LANTUS [Suspect]
     Indication: TYPE 1 DIABETES MELLITUS
     Dosage: DOSE:25 UNIT(S)
     Route: 058
     Dates: start: 2010
  2. LANTUS [Suspect]
     Indication: TYPE 2 DIABETES MELLITUS
     Dosage: DOSE:25 UNIT(S)
     Route: 058
     Dates: start: 2010
  3. SOLOSTAR [Suspect]
     Indication: TYPE 1 DIABETES MELLITUS
     Dates: start: 2010
  4. SOLOSTAR [Suspect]
     Indication: TYPE 2 DIABETES MELLITUS
     Dates: start: 2010
  5. ALL OTHER THERAPEUTIC PRODUCTS [Suspect]
     Route: 065
     Dates: start: 2012
  6. MULTIVITAMINS [Concomitant]
  7. FISH OIL [Concomitant]
  8. VICTOZA [Concomitant]
     Indication: DIABETES MELLITUS
  9. PRAVASTATIN [Concomitant]
  10. TAMOXIFEN [Concomitant]
     Indication: BREAST CANCER

REACTIONS (2)
  - Malaise [Unknown]
  - Ear discomfort [Not Recovered/Not Resolved]
